FAERS Safety Report 5877332-3 (Version None)
Quarter: 2008Q3

REPORT INFORMATION
  Report Type: 
  Country: None (occurrence: None)
  Receive Date: 20080908
  Receipt Date: 20080822
  Transmission Date: 20090109
  Serious: Yes (Hospitalization)
  Sender: FDA-Public Use
  Company Number: 20098

PATIENT
  Age: 63 Year
  Sex: Female

DRUGS (4)
  1. CARBOPLATIN [Suspect]
     Indication: LUNG CANCER METASTATIC
  2. CARBOPLATIN [Suspect]
     Indication: NON-SMALL CELL LUNG CANCER
  3. NAVELBINE [Suspect]
     Indication: LUNG CANCER METASTATIC
     Dates: start: 20080701
  4. NAVELBINE [Suspect]
     Indication: NON-SMALL CELL LUNG CANCER
     Dates: start: 20080701

REACTIONS (2)
  - MUSCULAR WEAKNESS [None]
  - SPINAL CORD COMPRESSION [None]
